FAERS Safety Report 13872139 (Version 2)
Quarter: 2017Q4

REPORT INFORMATION
  Report Type: Report from Study
  Country: CA (occurrence: CA)
  Receive Date: 20170816
  Receipt Date: 20171027
  Transmission Date: 20180320
  Serious: Yes (Other)
  Sender: FDA-Public Use
  Company Number: CA-ROCHE-1977949

PATIENT
  Age: 70 Year
  Sex: Female

DRUGS (23)
  1. PREDNISONE. [Concomitant]
     Active Substance: PREDNISONE
     Route: 065
  2. HYDROMORPHONE [Concomitant]
     Active Substance: HYDROMORPHONE
  3. OLESTYR [Concomitant]
  4. AZITHROMYCINE [Concomitant]
     Active Substance: AZITHROMYCIN DIHYDRATE
  5. HYDROXYCHLOROQUINE [Concomitant]
     Active Substance: HYDROXYCHLOROQUINE
  6. PREDNISONE. [Concomitant]
     Active Substance: PREDNISONE
     Route: 065
  7. DULOXETINE. [Concomitant]
     Active Substance: DULOXETINE
  8. D-TABS [Concomitant]
     Active Substance: CHOLECALCIFEROL
  9. TRAMADOL. [Concomitant]
     Active Substance: TRAMADOL
  10. PANTOLOC [Concomitant]
     Active Substance: PANTOPRAZOLE SODIUM
  11. VAGIFEM [Concomitant]
     Active Substance: ESTRADIOL
  12. AMITRIPTYLINE [Concomitant]
     Active Substance: AMITRIPTYLINE
  13. PREDNISONE. [Concomitant]
     Active Substance: PREDNISONE
     Route: 065
  14. IRBESARTAN. [Concomitant]
     Active Substance: IRBESARTAN
  15. PREDNISONE. [Concomitant]
     Active Substance: PREDNISONE
     Route: 065
     Dates: start: 201705
  16. LEVOFLOXACINE [Concomitant]
     Active Substance: LEVOFLOXACIN
  17. FOLIC ACID. [Concomitant]
     Active Substance: FOLIC ACID
  18. ACTEMRA [Suspect]
     Active Substance: TOCILIZUMAB
     Indication: RHEUMATOID ARTHRITIS
     Route: 058
     Dates: start: 20170621
  19. ACTEMRA [Suspect]
     Active Substance: TOCILIZUMAB
     Route: 058
     Dates: end: 2017
  20. ALENDRONATE [Concomitant]
     Active Substance: ALENDRONATE SODIUM
  21. METHOTREXATE. [Concomitant]
     Active Substance: METHOTREXATE
  22. ARAVA [Concomitant]
     Active Substance: LEFLUNOMIDE
  23. ATIVAN [Concomitant]
     Active Substance: LORAZEPAM

REACTIONS (7)
  - Nasopharyngitis [Not Recovered/Not Resolved]
  - Dyspnoea [Unknown]
  - Polymyalgia rheumatica [Not Recovered/Not Resolved]
  - Peripheral swelling [Unknown]
  - Oxygen saturation decreased [Recovering/Resolving]
  - Lung infection [Unknown]
  - Pneumonitis [Unknown]

NARRATIVE: CASE EVENT DATE: 201707
